FAERS Safety Report 15250276 (Version 1)
Quarter: 2018Q3

REPORT INFORMATION
  Report Type: Spontaneous
  Country: BR (occurrence: BR)
  Receive Date: 20180807
  Receipt Date: 20180807
  Transmission Date: 20181010
  Serious: Yes (Other)
  Sender: FDA-Public Use
  Company Number: BR-009507513-1808BRA002721

PATIENT
  Age: 39 Year
  Sex: Female

DRUGS (3)
  1. MERCILON [Suspect]
     Active Substance: DESOGESTREL\ETHINYL ESTRADIOL
     Indication: CONTRACEPTION
     Dosage: UNK
     Route: 048
     Dates: start: 201805, end: 201806
  2. MIRENA [Suspect]
     Active Substance: LEVONORGESTREL
  3. MIRENA [Suspect]
     Active Substance: LEVONORGESTREL
     Indication: CONTRACEPTION
     Dosage: 20 MCG/24HR, CONT
     Route: 015
     Dates: start: 20141201, end: 20180510

REACTIONS (10)
  - Abdominal pain [Not Recovered/Not Resolved]
  - Device use issue [Unknown]
  - Metrorrhagia [Unknown]
  - Abdominal pain [Recovered/Resolved]
  - Urinary tract infection [Unknown]
  - Menstrual disorder [Unknown]
  - Device dislocation [Unknown]
  - Device expulsion [Recovered/Resolved]
  - Depressed mood [Unknown]
  - Genital infection female [Recovered/Resolved]

NARRATIVE: CASE EVENT DATE: 20151126
